FAERS Safety Report 5989242-1 (Version None)
Quarter: 2008Q4

REPORT INFORMATION
  Report Type: 
  Country: None (occurrence: None)
  Receive Date: 20081210
  Receipt Date: 20081202
  Transmission Date: 20090506
  Serious: Yes (Other)
  Sender: FDA-Public Use
  Company Number: GB-ELI_LILLY_AND_COMPANY-GB200812000868

PATIENT
  Age: 7 Year
  Sex: Male

DRUGS (1)
  1. FLUOXETINE [Suspect]
     Indication: AUTISM
     Dosage: 4 MG, UNK
     Route: 048
     Dates: start: 20081115, end: 20081115

REACTIONS (3)
  - EYE SWELLING [None]
  - RHINORRHOEA [None]
  - WHEEZING [None]
